FAERS Safety Report 8924863 (Version 1)
Quarter: 2012Q4

REPORT INFORMATION
  Report Type: 
  Country: JP (occurrence: JP)
  Receive Date: 20121126
  Receipt Date: 20121126
  Transmission Date: 20130627
  Serious: Yes (Hospitalization)
  Sender: FDA-Public Use
  Company Number: JP-ROCHE-241134

PATIENT
  Age: 52 Year
  Sex: Male
  Weight: 55.3 kg

DRUGS (12)
  1. ROCEPHINE [Suspect]
     Indication: BRONCHITIS
     Route: 041
     Dates: start: 20000703, end: 20000703
  2. LOXONIN [Suspect]
     Indication: BRONCHITIS
     Route: 048
     Dates: start: 20000702, end: 20000704
  3. THEO-DUR [Suspect]
     Indication: BRONCHITIS
     Route: 048
     Dates: start: 20000702, end: 20000704
  4. MINOMYCIN [Suspect]
     Indication: BRONCHITIS
     Route: 048
     Dates: start: 20000621, end: 20000702
  5. BRUFEN [Suspect]
     Indication: BRONCHITIS
     Route: 048
     Dates: start: 20000630, end: 20000701
  6. GLIMICRON [Concomitant]
     Indication: DIABETES MELLITUS
     Route: 048
  7. CLARITH [Concomitant]
     Indication: BRONCHITIS
     Route: 048
     Dates: start: 20000703, end: 20000704
  8. VOLTAREN SR [Concomitant]
     Indication: BRONCHITIS
     Route: 065
     Dates: start: 20000702, end: 20000704
  9. TOCLASE [Concomitant]
     Indication: BRONCHITIS
     Route: 048
     Dates: start: 20000703, end: 20000704
  10. HOKUNALIN [Concomitant]
     Indication: BRONCHITIS
     Dosage: ROUTE REPORTED AS TAPE.
     Route: 050
     Dates: start: 20000702, end: 20000704
  11. CODEINE PHOSPHATE [Concomitant]
     Indication: BRONCHITIS
     Route: 048
     Dates: start: 20000630, end: 20000704
  12. PL [Concomitant]
     Indication: BRONCHITIS
     Route: 048
     Dates: start: 20000703, end: 20000704

REACTIONS (6)
  - Liver injury [Recovered/Resolved]
  - Eosinophilia [Recovered/Resolved]
  - Nausea [Recovered/Resolved]
  - Angiopathy [Recovered/Resolved]
  - Blood bilirubin increased [Unknown]
  - Hepatic enzyme increased [Unknown]
